FAERS Safety Report 20659139 (Version 1)
Quarter: 2022Q1

REPORT INFORMATION
  Report Type: Spontaneous
  Country: CN (occurrence: CN)
  Receive Date: 20220331
  Receipt Date: 20220331
  Transmission Date: 20220423
  Serious: Yes (Other)
  Sender: FDA-Public Use
  Company Number: CN-PFIZER INC-202200452053

PATIENT
  Age: 77 Year
  Sex: Female
  Weight: 62 kg

DRUGS (3)
  1. METHYLPREDNISOLONE SODIUM SUCCINATE [Suspect]
     Active Substance: METHYLPREDNISOLONE SODIUM SUCCINATE
     Indication: Myelopathy
     Dosage: 1 G, 1X/DAY
     Route: 042
     Dates: start: 20220310, end: 20220311
  2. METHYLPREDNISOLONE SODIUM SUCCINATE [Suspect]
     Active Substance: METHYLPREDNISOLONE SODIUM SUCCINATE
     Dosage: 0.5 G, 1X/DAY
     Route: 042
     Dates: start: 20220311, end: 20220314
  3. METHYLPREDNISOLONE SODIUM SUCCINATE [Suspect]
     Active Substance: METHYLPREDNISOLONE SODIUM SUCCINATE
     Dosage: 240 MG, 1X/DAY
     Route: 042
     Dates: start: 20220314, end: 20220317

REACTIONS (5)
  - Gastrointestinal haemorrhage [Recovering/Resolving]
  - Merycism [Recovering/Resolving]
  - Melaena [Recovering/Resolving]
  - Haemoglobin decreased [Recovering/Resolving]
  - Off label use [Unknown]

NARRATIVE: CASE EVENT DATE: 20220310
